FAERS Safety Report 24554522 (Version 1)
Quarter: 2024Q4

REPORT INFORMATION
  Report Type: Report from Study
  Country: US (occurrence: US)
  Receive Date: 20241028
  Receipt Date: 20241028
  Transmission Date: 20250115
  Serious: No
  Sender: DR REDDYS
  Company Number: US-DRL-USA-CLI/USA/24/0015347

PATIENT
  Age: 1 Year
  Sex: Female

DRUGS (1)
  1. JAVYGTOR [Suspect]
     Active Substance: SAPROPTERIN DIHYDROCHLORIDE
     Indication: Product used for unknown indication
     Dosage: DISSOLVE 2 PACKETS ONCE DAILY, FREQUENCY: 7 DAYS
     Route: 048

REACTIONS (2)
  - Therapy cessation [Unknown]
  - Drug ineffective [Unknown]
